FAERS Safety Report 9356534 (Version 3)
Quarter: 2013Q3

REPORT INFORMATION
  Report Type: Spontaneous
  Country: BR (occurrence: None)
  Receive Date: 20130614
  Receipt Date: 20130809
  Transmission Date: 20140515
  Serious: Yes (Hospitalization, Other)
  Sender: FDA-Public Use
  Company Number: VAL_02581_2013

PATIENT
  Sex: Female
  Weight: 70 kg

DRUGS (5)
  1. PARLODEL SRO [Suspect]
     Indication: BLOOD PROLACTIN INCREASED
     Dosage: 2 DF, AT NIGHT (SHE USES THIS WITH YOGART) ORAL
     Route: 048
     Dates: start: 2002, end: 2010
  2. SUBSTITUTE MEDICATION [Suspect]
     Indication: PRODUCT USED FOR UNKNOWN INDICATION
     Dosage: 1 DF, 1X/WEEK, ORAL
     Route: 048
  3. SUBSTITUTE MEDICATION [Suspect]
     Indication: BLOOD PROLACTIN INCREASED
     Dosage: 1 DF, 1X/WEEK, ORAL
     Route: 048
  4. PARLODEL [Suspect]
     Indication: BLOOD PROLACTIN INCREASED
  5. NEULEPTIL /00038401/ [Concomitant]
     Indication: PRODUCT USED FOR UNKNOWN INDICATION

REACTIONS (6)
  - Feeling abnormal [None]
  - Breast haemorrhage [None]
  - Product substitution issue [None]
  - Hypothyroidism [None]
  - Cerebrovascular accident [None]
  - Vitamin D decreased [None]
